FAERS Safety Report 7214255-1 (Version None)
Quarter: 2010Q4

REPORT INFORMATION
  Report Type: 
  Country: None (occurrence: None)
  Receive Date: 20101126
  Receipt Date: 20100805
  Transmission Date: 20110411
  Serious: Yes (Disabling)
  Sender: FDA-Public Use
  Company Number: WAES 1008USA00571

PATIENT
  Sex: Female

DRUGS (2)
  1. FOSAMAX [Suspect]
     Dosage: PO
     Route: 048
     Dates: start: 20000101, end: 20070101
  2. BONIVA [Suspect]
     Dosage: PO
     Route: 048
     Dates: start: 20070101, end: 20081231

REACTIONS (1)
  - OSTEONECROSIS OF JAW [None]
